FAERS Safety Report 13890353 (Version 1)
Quarter: 2017Q3

REPORT INFORMATION
  Report Type: Spontaneous
  Country: US (occurrence: US)
  Receive Date: 20170822
  Receipt Date: 20170822
  Transmission Date: 20171127
  Serious: No
  Sender: FDA-Public Use
  Company Number: US-009507513-1708USA006707

PATIENT
  Sex: Female

DRUGS (1)
  1. NEXPLANON [Suspect]
     Active Substance: ETONOGESTREL
     Dosage: 1 ROD, UNK
     Route: 059
     Dates: start: 20170711

REACTIONS (4)
  - Complication of device insertion [Unknown]
  - Device breakage [Unknown]
  - Implant site pain [Unknown]
  - Implant site bruising [Unknown]

NARRATIVE: CASE EVENT DATE: 2017
